FAERS Safety Report 16333546 (Version 1)
Quarter: 2019Q2

REPORT INFORMATION
  Report Type: Spontaneous
  Country: DE (occurrence: DE)
  Receive Date: 20190520
  Receipt Date: 20190520
  Transmission Date: 20190711
  Serious: Yes (Other)
  Sender: FDA-Public Use
  Company Number: DE-BAYER-2019-094236

PATIENT
  Sex: Female
  Weight: 74 kg

DRUGS (1)
  1. MAGNEVIST [Suspect]
     Active Substance: GADOPENTETATE DIMEGLUMINE
     Indication: NUCLEAR MAGNETIC RESONANCE IMAGING
     Dosage: UNK, ONCE

REACTIONS (12)
  - Vomiting [None]
  - Tension [None]
  - Paraesthesia [None]
  - Photopsia [None]
  - Dyspnoea [None]
  - Nausea [None]
  - Temperature intolerance [None]
  - Sleep disorder [None]
  - Thinking abnormal [None]
  - Muscle tightness [None]
  - Tinnitus [None]
  - Autoimmune thyroiditis [None]
